FAERS Safety Report 17545173 (Version 1)
Quarter: 2020Q1

REPORT INFORMATION
  Report Type: Spontaneous
  Country: US (occurrence: US)
  Receive Date: 20200314
  Receipt Date: 20200314
  Transmission Date: 20200409
  Serious: Yes (Death)
  Sender: FDA-Public Use
  Company Number: None

PATIENT
  Age: 72 Year
  Sex: Female
  Weight: 90 kg

DRUGS (17)
  1. FUROSEMIDE. [Concomitant]
     Active Substance: FUROSEMIDE
  2. LATANOPROST-TIMOLOL [Concomitant]
  3. PREDNISOLONE. [Concomitant]
     Active Substance: PREDNISOLONE
  4. PRILOSEC [Concomitant]
     Active Substance: OMEPRAZOLE MAGNESIUM
  5. CAPECITABINE. [Suspect]
     Active Substance: CAPECITABINE
     Indication: BREAST CANCER
     Dosage: ?          OTHER FREQUENCY:BID X 14 DAYS/21;?
     Route: 048
     Dates: start: 20191224
  6. CALTRATE WITH VITAMIN D [Concomitant]
     Active Substance: CALCIUM CARBONATE\CHOLECALCIFEROL
  7. GLIMEPIRIDE. [Concomitant]
     Active Substance: GLIMEPIRIDE
  8. LISINOPRIL. [Concomitant]
     Active Substance: LISINOPRIL
  9. ONDANSETRON [Concomitant]
     Active Substance: ONDANSETRON
  10. MELOXICAM. [Concomitant]
     Active Substance: MELOXICAM
  11. CENTRUM [Concomitant]
     Active Substance: VITAMINS
  12. METOPROLOL. [Concomitant]
     Active Substance: METOPROLOL
  13. TYLENOL [Concomitant]
     Active Substance: ACETAMINOPHEN
  14. HCTZ [Concomitant]
     Active Substance: HYDROCHLOROTHIAZIDE
  15. TIMOLOL. [Concomitant]
     Active Substance: TIMOLOL
  16. DICYCLOMINE [Concomitant]
     Active Substance: DICYCLOMINE HYDROCHLORIDE
  17. LOVASTATIN. [Concomitant]
     Active Substance: LOVASTATIN

REACTIONS (1)
  - Death [None]

NARRATIVE: CASE EVENT DATE: 20200310
